FAERS Safety Report 6658765-4 (Version None)
Quarter: 2010Q1

REPORT INFORMATION
  Report Type: 
  Country: None (occurrence: None)
  Receive Date: 20100330
  Receipt Date: 20100322
  Transmission Date: 20100710
  Serious: Yes (Death, Hospitalization)
  Sender: FDA-Public Use
  Company Number: GXKR2009GB12757

PATIENT
  Age: 64 Year
  Sex: Male

DRUGS (4)
  1. OXALIPLATIN [Suspect]
     Indication: COLORECTAL CANCER
     Dosage: UNK
     Route: 065
     Dates: start: 20090701, end: 20090701
  2. OXALIPLATIN [Suspect]
     Dosage: UNK
     Route: 065
     Dates: start: 20090801, end: 20090801
  3. XELODA [Suspect]
     Indication: COLORECTAL CANCER
     Dosage: UNK
     Route: 065
     Dates: start: 20090701, end: 20090701
  4. XELODA [Suspect]
     Dosage: UNK
     Route: 065
     Dates: start: 20090801, end: 20090801

REACTIONS (2)
  - DEATH [None]
  - MALAISE [None]
